FAERS Safety Report 10388971 (Version 1)
Quarter: 2014Q1

REPORT INFORMATION
  Report Type: Spontaneous
  Country: US (occurrence: None)
  Receive Date: 20140306
  Receipt Date: 20140306
  Transmission Date: 20141002
  Serious: Yes (Hospitalization)
  Sender: FDA-Public Use
  Company Number: 163-21880-13111980

PATIENT
  Sex: Male

DRUGS (4)
  1. REVLIMID [Suspect]
     Indication: PLASMA CELL MYELOMA
     Dosage: 21 IN 21 D
     Route: 048
     Dates: start: 20121109
  2. DEXAMETHASONE [Concomitant]
  3. POTASSIUM [Concomitant]
  4. AZITHROMYCIN [Concomitant]

REACTIONS (5)
  - Dysphagia [None]
  - Myalgia [None]
  - Back pain [None]
  - Diarrhoea [None]
  - Asthenia [None]
